FAERS Safety Report 8331141-4 (Version None)
Quarter: 2012Q2

REPORT INFORMATION
  Report Type: 
  Country: None (occurrence: None)
  Receive Date: 20120502
  Receipt Date: 20120411
  Transmission Date: 20120825
  Serious: No
  Sender: FDA-Public Use
  Company Number: US-AMGEN-USASP2012023081

PATIENT
  Age: 60 Year
  Sex: Female

DRUGS (2)
  1. ENBREL [Suspect]
     Indication: RHEUMATOID ARTHRITIS
     Dosage: 25 MG, 2 TIMES/WK
     Dates: start: 20040112
  2. TREXALL [Concomitant]
     Dosage: 1 MG, UNK
     Dates: start: 19870101

REACTIONS (9)
  - ABDOMINAL DISCOMFORT [None]
  - INJECTION SITE PAIN [None]
  - INJECTION SITE ERYTHEMA [None]
  - INJECTION SITE MACULE [None]
  - INJECTION SITE HAEMORRHAGE [None]
  - EMOTIONAL DISORDER [None]
  - NASOPHARYNGITIS [None]
  - SINUS HEADACHE [None]
  - INJECTION SITE SCAR [None]
